FAERS Safety Report 4962431-0 (Version None)
Quarter: 2006Q2

REPORT INFORMATION
  Report Type: 
  Country: None (occurrence: None)
  Receive Date: 20060403
  Receipt Date: 20060403
  Transmission Date: 20061013
  Serious: No
  Sender: FDA-Public Use
  Company Number: None

PATIENT
  Sex: Female
  Weight: 115.6672 kg

DRUGS (1)
  1. METHYLENE BLUE , 1% (10 MG/ML) AMERICAN REGENT, INC [Suspect]
     Indication: BIOPSY LYMPH GLAND
     Dosage: 5 ML ONCE INTRADERM
     Route: 023
     Dates: start: 20060309

REACTIONS (3)
  - INJECTION SITE ERYTHEMA [None]
  - INJECTION SITE PAIN [None]
  - POST PROCEDURAL COMPLICATION [None]
